FAERS Safety Report 8887031 (Version 1)
Quarter: 2012Q4

REPORT INFORMATION
  Report Type: 
  Country: SE (occurrence: SE)
  Receive Date: 20121105
  Receipt Date: 20121105
  Transmission Date: 20130627
  Serious: Yes (Death, Other)
  Sender: FDA-Public Use
  Company Number: SE-SANOFI-AVENTIS-2012SA028889

PATIENT
  Sex: Female

DRUGS (2)
  1. MULTAQ [Suspect]
     Indication: ATRIAL FIBRILLATION
     Route: 065
     Dates: end: 20120318
  2. MULTAQ [Suspect]
     Indication: ATRIAL FLUTTER
     Route: 065
     Dates: end: 20120318

REACTIONS (3)
  - Sudden death [Fatal]
  - Bradycardia [Unknown]
  - Blood pressure decreased [Unknown]
